FAERS Safety Report 24552699 (Version 1)
Quarter: 2024Q4

REPORT INFORMATION
  Report Type: Spontaneous
  Country: NL (occurrence: NL)
  Receive Date: 20241027
  Receipt Date: 20241027
  Transmission Date: 20250114
  Serious: Yes (Life-Threatening, Other)
  Sender: AUROBINDO
  Company Number: NL-LRB-01006245

PATIENT
  Age: 15 Year
  Sex: Female
  Weight: 46 kg

DRUGS (3)
  1. QUETIAPINE [Suspect]
     Active Substance: QUETIAPINE
     Indication: Anxiety disorder
     Dosage: 100 MILLIGRAM, TWO TIMES A DAY (2 X PER DAG 2 STUKS)
     Route: 065
     Dates: start: 20240813, end: 20240930
  2. QUETIAPINE [Suspect]
     Active Substance: QUETIAPINE
     Indication: Autism spectrum disorder
  3. LEVONORGESTREL AND ETHINYL ESTRADIOL [Concomitant]
     Active Substance: ETHINYL ESTRADIOL\LEVONORGESTREL
     Indication: Product used for unknown indication
     Dosage: UNK [TABLET, 30/150 ?G (MICROGRAM)]
     Route: 065

REACTIONS (3)
  - Suicidal ideation [Recovered/Resolved]
  - Aggression [Recovered/Resolved]
  - Depressed mood [Recovered/Resolved]
